FAERS Safety Report 24995100 (Version 1)
Quarter: 2025Q1

REPORT INFORMATION
  Report Type: Spontaneous
  Country: GB (occurrence: GB)
  Receive Date: 20250221
  Receipt Date: 20250221
  Transmission Date: 20250409
  Serious: Yes (Other)
  Sender: TEVA
  Company Number: GB-MHRA-TPP1482083C11553301YC1739780812989

PATIENT
  Age: 30 Year
  Sex: Male
  Weight: 60 kg

DRUGS (4)
  1. OFLOXACIN [Suspect]
     Active Substance: OFLOXACIN
     Indication: Ill-defined disorder
     Route: 065
     Dates: start: 20250207
  2. NAPROXEN [Concomitant]
     Active Substance: NAPROXEN
     Indication: Ill-defined disorder
     Dosage: TAKE ONE TWICE DAILY, DAILY DOSE: 2 DOSAGE FORM DAILY
     Route: 065
     Dates: start: 20241119, end: 20241203
  3. OFLOXACIN [Concomitant]
     Active Substance: OFLOXACIN
     Indication: Ill-defined disorder
     Dosage: 1 TWICE A DAY, DAILY DOSE: 2 DOSAGE FORM DAILY
     Route: 065
     Dates: start: 20250207, end: 20250208
  4. LANSOPRAZOLE [Concomitant]
     Active Substance: LANSOPRAZOLE
     Indication: Ill-defined disorder
     Dosage: TAKE ONE ONCE DAILY, DAILY DOSE: 1 DOSAGE FORM DAILY
     Route: 065
     Dates: start: 20241119, end: 20241203

REACTIONS (2)
  - Rectal haemorrhage [Recovered/Resolved]
  - Mallet finger [Recovering/Resolving]

NARRATIVE: CASE EVENT DATE: 20250210
